FAERS Safety Report 4533012-8 (Version None)
Quarter: 2004Q4

REPORT INFORMATION
  Report Type: 
  Country: None (occurrence: None)
  Receive Date: 20041221
  Receipt Date: 20041213
  Transmission Date: 20050328
  Serious: Yes (Other)
  Sender: FDA-Public Use
  Company Number: KR-BRISTOL-MYERS SQUIBB COMPANY-12794038

PATIENT
  Age: 36 Year
  Sex: Male

DRUGS (4)
  1. CISPLATIN [Suspect]
     Indication: LUNG ADENOCARCINOMA
     Route: 042
     Dates: start: 19850212
  2. ETOPOSIDE [Suspect]
     Indication: LUNG ADENOCARCINOMA
     Route: 042
     Dates: start: 19850212
  3. FLUOROURACIL [Suspect]
     Indication: LUNG ADENOCARCINOMA
     Route: 042
     Dates: start: 19850212
  4. RADIATION THERAPY [Concomitant]
     Indication: LUNG ADENOCARCINOMA
     Dosage: 5000 RAD.
     Dates: start: 19840901

REACTIONS (2)
  - ELECTROCARDIOGRAM ST SEGMENT DEPRESSION [None]
  - HYPOTENSION [None]
